FAERS Safety Report 18383722 (Version 1)
Quarter: 2020Q4

REPORT INFORMATION
  Report Type: Report from Study
  Country: GB (occurrence: GB)
  Receive Date: 20201014
  Receipt Date: 20201014
  Transmission Date: 20210114
  Serious: Yes (Hospitalization)
  Sender: FDA-Public Use
  Company Number: GB-MYLANLABS-2020M1086196

PATIENT
  Age: 50 Year
  Sex: Female

DRUGS (27)
  1. SERTRALINE [Concomitant]
     Active Substance: SERTRALINE HYDROCHLORIDE
     Dosage: 50 MILLIGRAM, QD
     Route: 048
     Dates: start: 201601
  2. SERTRALINE [Concomitant]
     Active Substance: SERTRALINE HYDROCHLORIDE
     Dosage: 62.5 MILLIGRAM, QD
     Route: 048
     Dates: start: 201702, end: 201709
  3. SERTRALINE [Concomitant]
     Active Substance: SERTRALINE HYDROCHLORIDE
     Dosage: 12.5 MILLIGRAM, QD
     Route: 048
     Dates: start: 201712, end: 201803
  4. MIRTAZAPINE. [Concomitant]
     Active Substance: MIRTAZAPINE
     Dosage: 15 MILLIGRAM, QD
     Route: 048
     Dates: start: 20160716, end: 201612
  5. MIRTAZAPINE. [Concomitant]
     Active Substance: MIRTAZAPINE
     Dosage: 30 MILLIGRAM, QD
     Route: 048
     Dates: start: 2016, end: 20160715
  6. MIRTAZAPINE. [Concomitant]
     Active Substance: MIRTAZAPINE
     Dosage: 30 MILLIGRAM, QD
     Route: 048
     Dates: start: 201612, end: 201803
  7. PERTUZUMAB. [Suspect]
     Active Substance: PERTUZUMAB
     Indication: BREAST CANCER METASTATIC
     Dosage: 840 MILLIGRAM
     Route: 042
     Dates: start: 20150629
  8. SERTRALINE [Concomitant]
     Active Substance: SERTRALINE HYDROCHLORIDE
     Dosage: 50 MILLIGRAM, QD
     Route: 048
     Dates: start: 201709, end: 201711
  9. SERTRALINE [Concomitant]
     Active Substance: SERTRALINE HYDROCHLORIDE
     Dosage: 100 MILLIGRAM, QD
     Route: 048
     Dates: start: 20160715, end: 201612
  10. DIAZEPAM. [Concomitant]
     Active Substance: DIAZEPAM
     Dosage: 4 MILLIGRAM, QD
     Route: 048
     Dates: start: 201709, end: 201712
  11. PYRIDOXINE [Concomitant]
     Active Substance: PYRIDOXINE
     Indication: NEUROPATHY PERIPHERAL
     Dosage: 50 MILLIGRAM
     Route: 048
     Dates: start: 20150807
  12. LIOTHYRONINE [Concomitant]
     Active Substance: LIOTHYRONINE
     Dosage: 10 MILLIGRAM, QD
     Route: 048
     Dates: start: 20160927
  13. MIRTAZAPINE. [Concomitant]
     Active Substance: MIRTAZAPINE
     Dosage: 15 MILLIGRAM, QD
     Route: 048
     Dates: end: 2016
  14. DOCETAXEL. [Suspect]
     Active Substance: DOCETAXEL
     Indication: BREAST CANCER METASTATIC
     Dosage: 130 MILLIGRAM
     Route: 042
     Dates: start: 20150630, end: 20151106
  15. SERTRALINE [Concomitant]
     Active Substance: SERTRALINE HYDROCHLORIDE
     Dosage: 37.5 MILLIGRAM, QD
     Route: 048
     Dates: start: 201711, end: 201712
  16. SERTRALINE [Concomitant]
     Active Substance: SERTRALINE HYDROCHLORIDE
     Dosage: 75 MILLIGRAM, QD
     Route: 048
     Dates: start: 201612, end: 201702
  17. LITHIUM. [Concomitant]
     Active Substance: LITHIUM
     Dosage: 500 MILLIGRAM, QD
     Route: 048
     Dates: start: 201709, end: 201712
  18. TRASTUZUMAB. [Suspect]
     Active Substance: TRASTUZUMAB
     Indication: BREAST CANCER METASTATIC
     Dosage: 600 MILLIGRAM
     Route: 058
     Dates: start: 20150629
  19. DIAZEPAM. [Concomitant]
     Active Substance: DIAZEPAM
     Dosage: 3.5 MILLIGRAM, QD
     Route: 048
     Dates: start: 201712
  20. MIRTAZAPINE. [Concomitant]
     Active Substance: MIRTAZAPINE
     Dosage: 15 MILLIGRAM, QD
     Route: 048
     Dates: start: 201709, end: 201712
  21. LITHIUM. [Concomitant]
     Active Substance: LITHIUM
     Dosage: 400 MILLIGRAM, QD
     Route: 048
     Dates: start: 201712, end: 20181222
  22. LITHIUM. [Concomitant]
     Active Substance: LITHIUM
     Dosage: 250 MILLIGRAM, QD
     Route: 048
     Dates: start: 20181223, end: 20190312
  23. LITHIUM. [Concomitant]
     Active Substance: LITHIUM
     Dosage: 150 MILLIGRAM, QD
     Route: 048
     Dates: start: 20190313
  24. LITHIUM. [Concomitant]
     Active Substance: LITHIUM
     Dosage: 400 MILLIGRAM, QD
     Route: 048
     Dates: start: 20161202, end: 201709
  25. DIAZEPAM. [Concomitant]
     Active Substance: DIAZEPAM
     Dosage: 6.5 MILLIGRAM, QD
     Route: 048
     Dates: start: 201612, end: 201712
  26. MIRTAZAPINE. [Concomitant]
     Active Substance: MIRTAZAPINE
     Dosage: 3.75 MILLIGRAM, QD
     Route: 048
     Dates: start: 201803, end: 201807
  27. MIRTAZAPINE. [Concomitant]
     Active Substance: MIRTAZAPINE
     Dosage: 7.5 MILLIGRAM, QD
     Route: 048
     Dates: start: 201712, end: 201803

REACTIONS (3)
  - Neutropenic sepsis [Recovered/Resolved]
  - Bursitis [Recovered/Resolved]
  - Breast pain [Recovered/Resolved]

NARRATIVE: CASE EVENT DATE: 20150709
